FAERS Safety Report 23131874 (Version 2)
Quarter: 2023Q4

REPORT INFORMATION
  Report Type: Spontaneous
  Country: US (occurrence: US)
  Receive Date: 20231101
  Receipt Date: 20231106
  Transmission Date: 20240109
  Serious: No
  Sender: FDA-Public Use
  Company Number: US-AMGEN-USASP2023192570

PATIENT
  Sex: Female

DRUGS (5)
  1. PROLIA [Suspect]
     Active Substance: DENOSUMAB
     Indication: Osteoporosis
     Dosage: UNK, Q6MO
     Route: 065
     Dates: start: 20230913
  2. COVID-19 VACCINE NOS [Suspect]
     Active Substance: COVID-19 VACCINE NOS
     Indication: Product used for unknown indication
     Dosage: UNK
     Route: 065
     Dates: start: 202309
  3. BENLYSTA [Concomitant]
     Active Substance: BELIMUMAB
     Dosage: UNK
     Route: 065
  4. METHOTREXATE [Concomitant]
     Active Substance: METHOTREXATE
     Route: 065
  5. VITAMIN D NOS [Concomitant]
     Active Substance: VITAMIN D NOS

REACTIONS (5)
  - Back pain [Not Recovered/Not Resolved]
  - Myalgia [Not Recovered/Not Resolved]
  - Pain in extremity [Not Recovered/Not Resolved]
  - Vomiting [Unknown]
  - Injection site swelling [Not Recovered/Not Resolved]

NARRATIVE: CASE EVENT DATE: 20230901
